FAERS Safety Report 17984950 (Version 1)
Quarter: 2020Q3

REPORT INFORMATION
  Report Type: Spontaneous
  Country: US (occurrence: US)
  Receive Date: 20200706
  Receipt Date: 20200706
  Transmission Date: 20201103
  Serious: No
  Sender: FDA-Public Use
  Company Number: US-JNJFOC-20200625294

PATIENT
  Age: 56 Year
  Sex: Male
  Weight: 90.8 kg

DRUGS (1)
  1. ZYRTEC [Suspect]
     Active Substance: CETIRIZINE HYDROCHLORIDE
     Indication: MULTIPLE ALLERGIES
     Dosage: ONCE A DAY AS DIRECTED. ONCE A DAY PRODUCT STARTED IN FEBRUARY OR MARCH. DATE OF LAST ADMINISTRATION
     Route: 048
     Dates: start: 2020

REACTIONS (1)
  - Photophobia [Not Recovered/Not Resolved]

NARRATIVE: CASE EVENT DATE: 202005
